FAERS Safety Report 21698238 (Version 3)
Quarter: 2023Q1

REPORT INFORMATION
  Report Type: Report from Study
  Country: UY (occurrence: UY)
  Receive Date: 20221208
  Receipt Date: 20230111
  Transmission Date: 20230418
  Serious: Yes (Other)
  Sender: FDA-Public Use
  Company Number: UY-ABBVIE-4227873

PATIENT
  Age: 57 Year
  Sex: Female

DRUGS (1)
  1. RINVOQ [Suspect]
     Active Substance: UPADACITINIB
     Indication: Rheumatoid arthritis
     Dosage: 15 MILLIGRAM
     Route: 048
     Dates: start: 20211115

REACTIONS (7)
  - Foot operation [Unknown]
  - Finger deformity [Unknown]
  - Tenoplasty [Unknown]
  - Musculoskeletal disorder [Unknown]
  - Joint dislocation [Unknown]
  - Foot deformity [Unknown]
  - Tendon disorder [Unknown]

NARRATIVE: CASE EVENT DATE: 20221011
